FAERS Safety Report 10213276 (Version 1)
Quarter: 2014Q2

REPORT INFORMATION
  Report Type: Spontaneous
  Country: US (occurrence: None)
  Receive Date: 20140530
  Receipt Date: 20140530
  Transmission Date: 20141212
  Serious: Yes (Other)
  Sender: FDA-Public Use
  Company Number: None

PATIENT
  Age: 60 Year
  Sex: Female
  Weight: 88.5 kg

DRUGS (1)
  1. GABAPENTIN [Suspect]
     Route: 048
     Dates: start: 20140210

REACTIONS (1)
  - Aggression [None]
